FAERS Safety Report 6247071-8 (Version None)
Quarter: 2009Q2

REPORT INFORMATION
  Report Type: 
  Country: None (occurrence: None)
  Receive Date: 20090624
  Receipt Date: 20090624
  Transmission Date: 20091009
  Serious: Yes (Hospitalization)
  Sender: FDA-Public Use
  Company Number: None

PATIENT
  Age: 58 Year
  Sex: Male
  Weight: 61 kg

DRUGS (10)
  1. HYDROCHLOROTHIAZIDE [Suspect]
     Indication: HYPERTENSION
     Dosage: 12.5MG PO QD
     Route: 048
  2. SPIRONOLACTONE [Suspect]
     Indication: HYPERTENSION
     Dosage: 25MG PO QD
     Route: 048
  3. AMITRIPTYLINE HCL [Concomitant]
  4. IRBESARTAN [Concomitant]
  5. ZOCOR [Concomitant]
  6. COLACE [Concomitant]
  7. LASIX [Concomitant]
  8. INSULIN [Concomitant]
  9. K [Concomitant]
  10. OMEPRAZOLE [Concomitant]

REACTIONS (3)
  - FALL [None]
  - HYPONATRAEMIA [None]
  - SUBARACHNOID HAEMORRHAGE [None]
